FAERS Safety Report 4517131-8 (Version None)
Quarter: 2004Q4

REPORT INFORMATION
  Report Type: 
  Country: None (occurrence: None)
  Receive Date: 20041007
  Receipt Date: 20040715
  Transmission Date: 20050328
  Serious: Yes (Hospitalization)
  Sender: FDA-Public Use
  Company Number: 233163K04USA

PATIENT
  Age: 53 Year
  Sex: Female

DRUGS (15)
  1. REBIF [Suspect]
     Indication: MULTIPLE SCLEROSIS
     Dosage: 44 MCG, 3 IN 1 WEEKS
     Dates: start: 20030101
  2. HYDROCODONE [Concomitant]
  3. IBUPROFEN [Concomitant]
  4. WELLBUTRIN SR [Concomitant]
  5. LIPITOR [Concomitant]
  6. TEMAZEPAM [Concomitant]
  7. TRAZODONE [Concomitant]
  8. ZOLOFT [Concomitant]
  9. AMINOPYRIDINE (FAMPRIDINE) [Concomitant]
  10. ZANAFLEX [Concomitant]
  11. NEURONTIN [Concomitant]
  12. SOLU-MEDROL [Concomitant]
  13. FUROSEMIDE [Concomitant]
  14. ACCUPRIL [Concomitant]
  15. OXYBUTYNIN [Concomitant]

REACTIONS (1)
  - INJECTION SITE NECROSIS [None]
